FAERS Safety Report 5840112-9 (Version None)
Quarter: 2008Q3

REPORT INFORMATION
  Report Type: 
  Country: None (occurrence: None)
  Receive Date: 20080811
  Receipt Date: 20080808
  Transmission Date: 20090109
  Serious: Yes (Hospitalization)
  Sender: FDA-Public Use
  Company Number: B0532664A

PATIENT
  Age: 70 Year
  Sex: Male

DRUGS (4)
  1. SAWACILLIN [Suspect]
     Route: 048
     Dates: start: 20080112, end: 20080118
  2. CLARITHROMYCIN [Concomitant]
     Dates: start: 20080112, end: 20080118
  3. PARIET [Concomitant]
     Dates: start: 20080112, end: 20080118
  4. FERROMIA [Concomitant]
     Dates: start: 20071222, end: 20080216

REACTIONS (4)
  - CEREBRAL INFARCTION [None]
  - LACUNAR INFARCTION [None]
  - MONOPARESIS [None]
  - SALIVARY HYPERSECRETION [None]
